FAERS Safety Report 4973577-5 (Version None)
Quarter: 2006Q1

REPORT INFORMATION
  Report Type: 
  Country: None (occurrence: None)
  Receive Date: 20060215
  Receipt Date: 20051019
  Transmission Date: 20060701
  Serious: No
  Sender: FDA-Public Use
  Company Number: USA0510111341

PATIENT
  Age: 62 Year
  Sex: Male

DRUGS (4)
  1. CIALIS [Suspect]
     Dosage: 20 MG, AS NEEDED
  2. VITAMIN E /001105/ (VITAMIN E /001105/) [Concomitant]
  3. CALCIUM (CALCIUM) [Concomitant]
  4. SELENIUM (SELENIUM) [Concomitant]

REACTIONS (2)
  - ANORGASMIA [None]
  - DRUG INEFFECTIVE [None]
